FAERS Safety Report 21129152 (Version 2)
Quarter: 2022Q3

REPORT INFORMATION
  Report Type: Spontaneous
  Country: US (occurrence: US)
  Receive Date: 20220725
  Receipt Date: 20220922
  Transmission Date: 20221027
  Serious: No
  Sender: FDA-Public Use
  Company Number: US-SUNOVION-2022SUN002221

PATIENT
  Age: 81 Year
  Sex: Female

DRUGS (2)
  1. KYNMOBI [Suspect]
     Active Substance: APOMORPHINE HYDROCHLORIDE
     Indication: Parkinson^s disease
     Dosage: 10 MG, AS NECESSARY (EVERY 2 HOURS UP TO 5 TIMES PER DAY AS NEEDED)
     Route: 060
  2. KYNMOBI [Suspect]
     Active Substance: APOMORPHINE HYDROCHLORIDE
     Dosage: 30 MG, AS NECESSARY
     Route: 060

REACTIONS (2)
  - Malaise [Recovered/Resolved]
  - Feeling abnormal [Unknown]

NARRATIVE: CASE EVENT DATE: 20220721
